FAERS Safety Report 21404410 (Version 1)
Quarter: 2022Q4

REPORT INFORMATION
  Report Type: Other
  Country: None (occurrence: US)
  Receive Date: 20221003
  Receipt Date: 20221003
  Transmission Date: 20230113
  Serious: No
  Sender: FDA-Public Use
  Company Number: US-B.Braun Medical Inc.-2133424

PATIENT
  Age: 72 Year
  Sex: Male

DRUGS (8)
  1. MANNITOL [Suspect]
     Active Substance: MANNITOL
  2. SODIUM CHLORIDE [Suspect]
     Active Substance: SODIUM CHLORIDE
  3. LACTULOSE [Suspect]
     Active Substance: LACTULOSE
  4. RIFAXIMIN [Suspect]
     Active Substance: RIFAXIMIN
  5. SODIUM BENZOATE\SODIUM PHENYLACETATE [Suspect]
     Active Substance: SODIUM BENZOATE\SODIUM PHENYLACETATE
  6. LEVOFLOXACIN [Suspect]
     Active Substance: LEVOFLOXACIN
  7. DOXYCYCLINE [Suspect]
     Active Substance: DOXYCYCLINE
  8. ARGININE [Suspect]
     Active Substance: ARGININE

REACTIONS (1)
  - Drug ineffective [Unknown]
